FAERS Safety Report 8352258-4 (Version None)
Quarter: 2012Q2

REPORT INFORMATION
  Report Type: 
  Country: None (occurrence: None)
  Receive Date: 20120511
  Receipt Date: 20120503
  Transmission Date: 20120825
  Serious: Yes (Other)
  Sender: FDA-Public Use
  Company Number: GB-JNJFOC-20120507060

PATIENT
  Sex: Male

DRUGS (2)
  1. STELARA [Suspect]
     Indication: PSORIASIS
     Route: 058
  2. METOCLOPRAMIDE [Concomitant]
     Route: 065

REACTIONS (2)
  - WEIGHT DECREASED [None]
  - HODGKIN'S DISEASE [None]
